FAERS Safety Report 5213166-0 (Version None)
Quarter: 2007Q1

REPORT INFORMATION
  Report Type: 
  Country: None (occurrence: None)
  Receive Date: 20070119
  Receipt Date: 20070116
  Transmission Date: 20070707
  Serious: Yes (Other)
  Sender: FDA-Public Use
  Company Number: US-GLAXOSMITHKLINE-A0635865A

PATIENT
  Age: 24 Year
  Sex: Female

DRUGS (3)
  1. LAMICTAL [Suspect]
     Dosage: 125MG TWICE PER DAY
     Route: 048
     Dates: start: 20011201
  2. YASMIN [Concomitant]
  3. ZYRTEC [Concomitant]

REACTIONS (3)
  - DEMENTIA [None]
  - MOOD ALTERED [None]
  - PERFORMANCE STATUS DECREASED [None]
